FAERS Safety Report 18108371 (Version 1)
Quarter: 2020Q3

REPORT INFORMATION
  Report Type: Spontaneous
  Country: US (occurrence: US)
  Receive Date: 20200804
  Receipt Date: 20200804
  Transmission Date: 20201103
  Serious: Yes (Hospitalization)
  Sender: FDA-Public Use
  Company Number: None

PATIENT
  Age: 57 Year
  Sex: Female
  Weight: 103 kg

DRUGS (1)
  1. CISPLATIN. [Suspect]
     Active Substance: CISPLATIN
     Dates: end: 20190827

REACTIONS (10)
  - Paraesthesia [None]
  - Spinal osteoarthritis [None]
  - Ejection fraction decreased [None]
  - Lumbar spinal stenosis [None]
  - Myocardial ischaemia [None]
  - Hypoaesthesia [None]
  - Gait disturbance [None]
  - Radiculopathy [None]
  - Peripheral sensory neuropathy [None]
  - Asthenia [None]

NARRATIVE: CASE EVENT DATE: 20191216
